FAERS Safety Report 23287331 (Version 1)
Quarter: 2023Q4

REPORT INFORMATION
  Report Type: Spontaneous
  Country: US (occurrence: US)
  Receive Date: 20231212
  Receipt Date: 20231212
  Transmission Date: 20240110
  Serious: Yes (Life-Threatening, Hospitalization, Other)
  Sender: FDA-Public Use
  Company Number: US-MLMSERVICE-20231121-4677652-1

PATIENT

DRUGS (2)
  1. CYANOCOBALAMIN [Suspect]
     Active Substance: CYANOCOBALAMIN
     Indication: Anaemia
     Dosage: 1000 MICROGRAM, WEEKLY (AT 33 WEEKS GESTATION (IM B12 1000MCG X 4 DOSES))
     Route: 030
  2. CYANOCOBALAMIN [Suspect]
     Active Substance: CYANOCOBALAMIN
     Indication: Vitamin B12 decreased
     Route: 048

REACTIONS (2)
  - Cardiac arrest [Recovered/Resolved]
  - Hypokalaemia [Recovered/Resolved]
